FAERS Safety Report 21550455 (Version 1)
Quarter: 2022Q4

REPORT INFORMATION
  Report Type: Spontaneous
  Country: US (occurrence: US)
  Receive Date: 20221103
  Receipt Date: 20221103
  Transmission Date: 20230113
  Serious: No
  Sender: FDA-Public Use
  Company Number: US-BAYER-2022A153904

PATIENT
  Age: 71 Year
  Sex: Male

DRUGS (2)
  1. LOTRIMIN ULTRA ATHLETES FOOT [Suspect]
     Active Substance: BUTENAFINE HYDROCHLORIDE
     Indication: Prophylaxis
     Dosage: 2 DF, BID
     Route: 061
     Dates: start: 20221026, end: 20221101
  2. LOTRIMIN ULTRA ATHLETES FOOT [Suspect]
     Active Substance: BUTENAFINE HYDROCHLORIDE
     Indication: Tinea pedis

REACTIONS (1)
  - Therapeutic product effect incomplete [Unknown]
